FAERS Safety Report 6133151-4 (Version None)
Quarter: 2009Q1

REPORT INFORMATION
  Report Type: 
  Country: None (occurrence: None)
  Receive Date: 20090324
  Receipt Date: 20090312
  Transmission Date: 20090719
  Serious: Yes (Death)
  Sender: FDA-Public Use
  Company Number: CIP09000615

PATIENT
  Age: 58 Year
  Sex: Female

DRUGS (10)
  1. MACROBID [Suspect]
     Dosage: DOSAGE/REGIMEN, ORAL
     Route: 048
  2. OPANA [Suspect]
     Indication: BACK PAIN
     Dosage: 10 MG TWICE DAILY, ORAL
     Route: 048
     Dates: start: 20070619, end: 20090113
  3. ALPRAZOLAM [Suspect]
     Dosage: 1 MG AS NEEDED, ORAL
     Route: 048
  4. PROMETHAZINE [Suspect]
     Dosage: 25 MG AS NEEDED, ORAL
     Route: 048
  5. ZOLPIDEM [Suspect]
     Indication: INSOMNIA
     Dosage: 10 MG AT BEDTIME, ORAL
     Route: 048
  6. PROZAC [Suspect]
     Dosage: DOSAGE/REGIMEN, ORAL
     Route: 048
  7. TOPAMAX [Suspect]
     Indication: INTERCOSTAL NEURALGIA
     Dosage: 50 MG TWICE DAILY, ORAL
     Route: 048
  8. TOPAMAX [Suspect]
     Indication: TRIGEMINAL NEURALGIA
     Dosage: 50 MG TWICE DAILY, ORAL
     Route: 048
  9. NEXIUM [Suspect]
     Dosage: 40 MG UNKNOWN REGIMEN, ORAL
     Route: 048
  10. PROTONIX [Suspect]
     Dosage: DOSAGE/REGIMEN, ORAL
     Route: 048

REACTIONS (4)
  - CARDIAC ARREST [None]
  - CHEST PAIN [None]
  - LOSS OF CONSCIOUSNESS [None]
  - MULTIPLE DRUG OVERDOSE ACCIDENTAL [None]
